FAERS Safety Report 8789925 (Version 2)
Quarter: 2012Q4

REPORT INFORMATION
  Report Type: 
  Country: US (occurrence: US)
  Receive Date: 20120914
  Receipt Date: 20121030
  Transmission Date: 20130627
  Serious: Yes (Hospitalization, Other)
  Sender: FDA-Public Use
  Company Number: US-ELI_LILLY_AND_COMPANY-US201209001375

PATIENT
  Sex: Female

DRUGS (8)
  1. HUMALOG LISPRO [Suspect]
     Indication: TYPE 2 DIABETES MELLITUS
     Dosage: 55 u, each morning
  2. HUMALOG LISPRO [Suspect]
     Dosage: 20 u, qd
  3. HUMALOG LISPRO [Suspect]
     Dosage: 50 u, each evening
  4. HUMALOG LISPRO [Suspect]
     Dosage: 3 u, prn
  5. HUMULIN NPH [Suspect]
     Indication: TYPE 2 DIABETES MELLITUS
     Dosage: 70 u, each morning
  6. HUMULIN NPH [Suspect]
     Dosage: 65 u, each evening
  7. LASIX                                   /USA/ [Concomitant]
     Dosage: UNK, unknown
     Route: 048
     Dates: start: 2002, end: 2004
  8. LASIX                                   /USA/ [Concomitant]
     Dosage: UNK, unknown
     Route: 042
     Dates: start: 2004

REACTIONS (30)
  - Fluid retention [Unknown]
  - Fluid retention [Unknown]
  - Breast cancer [Unknown]
  - Upper limb fracture [Unknown]
  - Pneumonitis [Unknown]
  - Eye haemorrhage [Unknown]
  - Gastric operation [Unknown]
  - Blood glucose decreased [Unknown]
  - Injection site pain [Not Recovered/Not Resolved]
  - Fall [Recovered/Resolved]
  - Blister infected [Not Recovered/Not Resolved]
  - Immune system disorder [Unknown]
  - Hyperhidrosis [Unknown]
  - Constipation [Unknown]
  - Hypoaesthesia oral [Unknown]
  - Visual brightness [Unknown]
  - Wound secretion [Unknown]
  - Wound complication [Unknown]
  - Wound infection [Unknown]
  - Pain in extremity [Not Recovered/Not Resolved]
  - Cataract [Unknown]
  - Eye pain [Unknown]
  - Colour blindness acquired [Unknown]
  - Injection site mass [Not Recovered/Not Resolved]
  - Fluid retention [Not Recovered/Not Resolved]
  - Pulmonary congestion [Unknown]
  - Blood glucose increased [Unknown]
  - Blood pressure diastolic decreased [Unknown]
  - Decreased appetite [Unknown]
  - Oedema peripheral [Not Recovered/Not Resolved]
